FAERS Safety Report 19375155 (Version 2)
Quarter: 2021Q3

REPORT INFORMATION
  Report Type: Spontaneous
  Country: AR (occurrence: AR)
  Receive Date: 20210604
  Receipt Date: 20210709
  Transmission Date: 20211014
  Serious: Yes (Other)
  Sender: FDA-Public Use
  Company Number: AR-PFIZER INC-2021593322

PATIENT
  Age: 70 Year
  Sex: Female

DRUGS (1)
  1. XELJANZ XR [Suspect]
     Active Substance: TOFACITINIB CITRATE
     Indication: RHEUMATOID ARTHRITIS
     Dosage: 11 MG, 1X/DAY
     Dates: start: 20210429

REACTIONS (6)
  - Palpitations [Unknown]
  - Fall [Unknown]
  - Dyspnoea [Unknown]
  - Blood disorder [Unknown]
  - Gait inability [Unknown]
  - Decreased immune responsiveness [Unknown]
